FAERS Safety Report 23204439 (Version 1)
Quarter: 2023Q4

REPORT INFORMATION
  Report Type: Spontaneous
  Country: CG (occurrence: CG)
  Receive Date: 20231120
  Receipt Date: 20231120
  Transmission Date: 20240109
  Serious: Yes (Other)
  Sender: FDA-Public Use
  Company Number: CG-ORGANON-O2311COG001575

PATIENT
  Age: 67 Year
  Sex: Female

DRUGS (1)
  1. BETAMETHASONE DIPROPIONATE [Suspect]
     Active Substance: BETAMETHASONE DIPROPIONATE
     Indication: Skin depigmentation
     Dosage: UNK
     Route: 061

REACTIONS (2)
  - Osteonecrosis [Unknown]
  - Intentional product misuse [Unknown]
